FAERS Safety Report 16819165 (Version 3)
Quarter: 2019Q4

REPORT INFORMATION
  Report Type: Spontaneous
  Country: DE (occurrence: DE)
  Receive Date: 20190917
  Receipt Date: 20191217
  Transmission Date: 20200122
  Serious: Yes (Other)
  Sender: FDA-Public Use
  Company Number: DE-PFIZER INC-2018076363

PATIENT
  Age: 77 Year
  Sex: Female
  Weight: 75 kg

DRUGS (8)
  1. OLYSIO [Suspect]
     Active Substance: SIMEPREVIR
     Indication: CHRONIC HEPATITIS C
     Dosage: 150 MG,QD
     Route: 048
     Dates: start: 20160908, end: 20161130
  2. COPEGUS [Suspect]
     Active Substance: RIBAVIRIN
     Indication: CHRONIC HEPATITIS C
     Dosage: 800 MG,QD
     Route: 048
     Dates: start: 20160908, end: 20161130
  3. RIBAVIRIN. [Suspect]
     Active Substance: RIBAVIRIN
     Indication: CHRONIC HEPATITIS C
     Dosage: 600 MG, QD
     Route: 048
     Dates: start: 20161008, end: 20161130
  4. SOVALDI [Suspect]
     Active Substance: SOFOSBUVIR
     Indication: CHRONIC HEPATITIS C
     Dosage: 400 MG,QD
     Route: 048
     Dates: start: 20160908, end: 20161130
  5. OMEPRAZOLE. [Suspect]
     Active Substance: OMEPRAZOLE
     Dosage: UNK
     Route: 048
     Dates: start: 20141103
  6. RIBAVIRIN. [Suspect]
     Active Substance: RIBAVIRIN
     Dosage: DOSAGE CHANGED
     Route: 048
  7. RAMILICH [Suspect]
     Active Substance: RAMIPRIL
     Indication: PORTAL HYPERTENSION
     Dosage: 5 MG, UNK
     Route: 048
     Dates: start: 20141017
  8. RAMILICH [Suspect]
     Active Substance: RAMIPRIL
     Dosage: DOSAGE CHANGED
     Route: 048

REACTIONS (2)
  - Anaemia [Unknown]
  - Laboratory test abnormal [Unknown]

NARRATIVE: CASE EVENT DATE: 20160929
